FAERS Safety Report 8134155-2 (Version None)
Quarter: 2012Q1

REPORT INFORMATION
  Report Type: 
  Country: None (occurrence: None)
  Receive Date: 20120207
  Receipt Date: 20120117
  Transmission Date: 20120608
  Serious: No
  Sender: FDA-Public Use
  Company Number: 2012SP003818

PATIENT
  Sex: Female

DRUGS (2)
  1. SYCREST (ASENAPINE /05706901/) [Suspect]
     Indication: MANIA
     Dosage: 20 MG;QD;
  2. OLANZAPINE [Concomitant]

REACTIONS (3)
  - WEIGHT INCREASED [None]
  - OFF LABEL USE [None]
  - OEDEMA [None]
